FAERS Safety Report 7392425-X (Version None)
Quarter: 2011Q1

REPORT INFORMATION
  Report Type: 
  Country: None (occurrence: None)
  Receive Date: 20110330
  Receipt Date: 20110330
  Transmission Date: 20110831
  Serious: Yes (Hospitalization, Other)
  Sender: FDA-Public Use
  Company Number: None

PATIENT
  Sex: Female
  Weight: 70.3075 kg

DRUGS (1)
  1. ANASTROZOLE [Suspect]
     Indication: BREAST CANCER STAGE I
     Dosage: 1 MG DAILY PO
     Route: 048
     Dates: start: 20100911, end: 20110321

REACTIONS (6)
  - DEPRESSION [None]
  - ARTHRALGIA [None]
  - AMNESIA [None]
  - FATIGUE [None]
  - SOCIAL AVOIDANT BEHAVIOUR [None]
  - FEELING ABNORMAL [None]
